FAERS Safety Report 24584929 (Version 1)
Quarter: 2024Q4

REPORT INFORMATION
  Report Type: Spontaneous
  Country: US (occurrence: US)
  Receive Date: 20241106
  Receipt Date: 20241106
  Transmission Date: 20250115
  Serious: Yes (Hospitalization)
  Sender: MYLAN
  Company Number: US-MYLANLABS-2024M1099307

PATIENT
  Age: 66 Year
  Sex: Female

DRUGS (9)
  1. FUROSEMIDE [Suspect]
     Active Substance: FUROSEMIDE
     Indication: Hyperkalaemia
     Dosage: 60 MILLIGRAM, QD
     Route: 065
  2. LACTULOSE [Suspect]
     Active Substance: LACTULOSE
     Indication: Hyperkalaemia
     Dosage: 17 GRAM, QD
     Route: 065
  3. INSULIN HUMAN [Suspect]
     Active Substance: INSULIN HUMAN
     Indication: Hyperkalaemia
     Dosage: 10 INTERNATIONAL UNIT
     Route: 065
  4. PATIROMER [Suspect]
     Active Substance: PATIROMER
     Indication: Hyperkalaemia
     Dosage: 8.4 GRAM, QD
     Route: 065
  5. PATIROMER [Suspect]
     Active Substance: PATIROMER
     Dosage: 16.8 GRAM, QD
     Route: 065
  6. ALBUTEROL [Suspect]
     Active Substance: ALBUTEROL
     Indication: Hyperkalaemia
     Dosage: 10 INTERNATIONAL UNIT
     Route: 065
  7. SODIUM BICARBONATE [Suspect]
     Active Substance: SODIUM BICARBONATE
     Indication: Hyperkalaemia
     Dosage: 150 MILLIEQUIVALENT
     Route: 042
  8. SODIUM BICARBONATE [Suspect]
     Active Substance: SODIUM BICARBONATE
     Indication: Metabolic acidosis
  9. DEXTROSE [Concomitant]
     Active Substance: DEXTROSE MONOHYDRATE
     Indication: Hyperkalaemia
     Dosage: UNK
     Route: 065

REACTIONS (3)
  - Drug ineffective [Unknown]
  - Diarrhoea [Unknown]
  - Off label use [Unknown]
